FAERS Safety Report 16583310 (Version 2)
Quarter: 2019Q3

REPORT INFORMATION
  Report Type: Spontaneous
  Country: MA (occurrence: MA)
  Receive Date: 20190717
  Receipt Date: 20190910
  Transmission Date: 20191004
  Serious: Yes (Other)
  Sender: FDA-Public Use
  Company Number: MA-PFIZER INC-2019300328

PATIENT
  Age: 4 Year
  Sex: Male
  Weight: 5.56 kg

DRUGS (1)
  1. GENOTROPIN [Suspect]
     Active Substance: SOMATROPIN
     Indication: GROWTH HORMONE DEFICIENCY
     Dosage: 0.1 MG (1 CLIC), DAILY
     Dates: start: 20190705

REACTIONS (1)
  - Hyperthermia [Unknown]

NARRATIVE: CASE EVENT DATE: 20190710
